FAERS Safety Report 20891720 (Version 1)
Quarter: 2022Q2

REPORT INFORMATION
  Report Type: Spontaneous
  Country: US (occurrence: US)
  Receive Date: 20220530
  Receipt Date: 20220530
  Transmission Date: 20220721
  Serious: No
  Sender: FDA-Public Use
  Company Number: US-BRISTOL-MYERS SQUIBB COMPANY-2022-048910

PATIENT
  Age: 74 Year
  Sex: Female

DRUGS (1)
  1. REVLIMID [Suspect]
     Active Substance: LENALIDOMIDE
     Indication: Plasma cell myeloma
     Dosage: 7 DAYS ON ?THEN 7 DAYS OFF, ?THEN REPEAT ?CYCLE
     Route: 048

REACTIONS (3)
  - Product dose omission issue [Recovered/Resolved]
  - Fluid retention [Recovered/Resolved]
  - Intentional product misuse [Unknown]
